FAERS Safety Report 22337510 (Version 1)
Quarter: 2023Q2

REPORT INFORMATION
  Report Type: Spontaneous
  Country: US (occurrence: None)
  Receive Date: 20230517
  Receipt Date: 20230517
  Transmission Date: 20230721
  Serious: No
  Sender: FDA-Public Use
  Company Number: None

PATIENT
  Age: 67 Year
  Sex: Female
  Weight: 72 kg

DRUGS (7)
  1. REPATHA [Suspect]
     Active Substance: EVOLOCUMAB
     Indication: Blood cholesterol
     Dosage: OTHER FREQUENCY : EVERY TWO WEEKS;?
     Route: 058
     Dates: start: 20230126, end: 20230413
  2. AMLODIPINE [Concomitant]
     Active Substance: AMLODIPINE BESYLATE
  3. Besylate [Concomitant]
  4. Vitamins B [Concomitant]
  5. Vitamins D [Concomitant]
  6. ASCORBIC ACID [Concomitant]
     Active Substance: ASCORBIC ACID
  7. COENZYME Q10 [Concomitant]
     Active Substance: DIETARY SUPPLEMENT\UBIDECARENONE

REACTIONS (2)
  - Urinary tract infection [None]
  - Therapy interrupted [None]

NARRATIVE: CASE EVENT DATE: 20230404
